FAERS Safety Report 5177046-1 (Version None)
Quarter: 2006Q4

REPORT INFORMATION
  Report Type: 
  Country: None (occurrence: None)
  Receive Date: 20061218
  Receipt Date: 20061205
  Transmission Date: 20070319
  Serious: Yes (Death)
  Sender: FDA-Public Use
  Company Number: JP-JPN-A200605202

PATIENT
  Age: 42 Year
  Sex: Female

DRUGS (3)
  1. PAXIL [Suspect]
     Indication: SLEEP DISORDER
     Dosage: 20MG PER DAY
     Route: 048
     Dates: start: 20061001, end: 20061101
  2. MYSLEE [Concomitant]
     Indication: DRUG USE FOR UNKNOWN INDICATION
     Route: 048
  3. CONCURRENT MEDICATIONS [Concomitant]
     Indication: DRUG USE FOR UNKNOWN INDICATION
     Route: 065

REACTIONS (3)
  - CONFUSIONAL STATE [None]
  - DRUG WITHDRAWAL SYNDROME [None]
  - UTERINE CANCER [None]
